FAERS Safety Report 7893964-5 (Version None)
Quarter: 2011Q4

REPORT INFORMATION
  Report Type: 
  Country: None (occurrence: None)
  Receive Date: 20111104
  Receipt Date: 20111027
  Transmission Date: 20120403
  Serious: Yes (Hospitalization)
  Sender: FDA-Public Use
  Company Number: JP-AMGEN-JPNCT2011018601

PATIENT
  Age: 80 Year
  Sex: Male
  Weight: 54 kg

DRUGS (10)
  1. FLUOROURACIL [Concomitant]
     Route: 041
     Dates: start: 20110214, end: 20110215
  2. LEVOLEUCOVORIN CALCIUM [Concomitant]
     Route: 041
     Dates: start: 20110131, end: 20110201
  3. LEVOLEUCOVORIN CALCIUM [Concomitant]
     Route: 041
     Dates: start: 20110214, end: 20110215
  4. OXALIPLATIN [Concomitant]
     Route: 041
     Dates: start: 20110214, end: 20110214
  5. FLUOROURACIL [Concomitant]
     Route: 041
     Dates: start: 20101213, end: 20110213
  6. OXALIPLATIN [Concomitant]
     Route: 041
     Dates: start: 20110131, end: 20110131
  7. OXALIPLATIN [Concomitant]
     Indication: COLORECTAL CANCER
     Route: 041
     Dates: start: 20101213, end: 20110130
  8. LEVOLEUCOVORIN CALCIUM [Concomitant]
     Indication: COLORECTAL CANCER
     Route: 041
     Dates: start: 20101213, end: 20110130
  9. PANITUMUMAB [Suspect]
     Indication: COLORECTAL CANCER
     Dosage: 336 MG, Q2WK
     Route: 041
     Dates: start: 20101213, end: 20110214
  10. FLUOROURACIL [Concomitant]
     Indication: COLORECTAL CANCER
     Route: 040
     Dates: start: 20101213, end: 20110214

REACTIONS (3)
  - BONE MARROW FAILURE [None]
  - INTERSTITIAL LUNG DISEASE [None]
  - RASH [None]
